FAERS Safety Report 9581385 (Version 3)
Quarter: 2013Q4

REPORT INFORMATION
  Report Type: Spontaneous
  Country: JP (occurrence: JP)
  Receive Date: 20131002
  Receipt Date: 20131111
  Transmission Date: 20140711
  Serious: Yes (Hospitalization)
  Sender: FDA-Public Use
  Company Number: JP-B.I. PHARMACEUTICALS,INC./RIDGEFIELD-2013-BI-30814YA

PATIENT
  Age: 83 Year
  Sex: Male

DRUGS (9)
  1. HARNAL (TAMSULOSIN) ORODISPERSABLE CR [Suspect]
     Dosage: 0.1 MG
     Route: 048
  2. BENECID (PROBENECID) [Concomitant]
  3. SPIRONOLACTONE (SPIRONOLACTONE) [Concomitant]
     Route: 048
  4. CLARITIN [Concomitant]
     Route: 048
  5. MAGMITT (MAGNESIUM OXIDE) [Concomitant]
  6. FERROMIA [Concomitant]
     Route: 048
  7. HOKUNALIN [Concomitant]
     Dosage: FORMULATION: TAPE
  8. NAUZELIN (DOMPERIDONE) [Concomitant]
  9. MICOMBI COMBINATION (HYDROCHLOROTHIAZIDE, TELMISART) [Concomitant]

REACTIONS (1)
  - Ileus [Unknown]
